FAERS Safety Report 6491542-6 (Version None)
Quarter: 2009Q4

REPORT INFORMATION
  Report Type: 
  Country: None (occurrence: None)
  Receive Date: 20091123
  Receipt Date: 20090908
  Transmission Date: 20100525
  Serious: No
  Sender: FDA-Public Use
  Company Number: 8051771

PATIENT
  Age: 27 Year
  Sex: Female
  Weight: 62.7 kg

DRUGS (4)
  1. CIMZIA [Suspect]
     Indication: COLITIS ULCERATIVE
     Dosage: 400 MG SC
     Route: 058
     Dates: start: 20090821
  2. IMURAN [Concomitant]
  3. YASMIN [Concomitant]
  4. MULTI-VITAMIN [Concomitant]

REACTIONS (2)
  - INJECTION SITE HAEMATOMA [None]
  - INJECTION SITE HAEMORRHAGE [None]
